FAERS Safety Report 10997132 (Version 2)
Quarter: 2015Q2

REPORT INFORMATION
  Report Type: Report from Study
  Country: AR (occurrence: AR)
  Receive Date: 20150408
  Receipt Date: 20150413
  Transmission Date: 20150821
  Serious: Yes (Hospitalization)
  Sender: FDA-Public Use
  Company Number: AR-ROCHE-1560317

PATIENT
  Age: 59 Year
  Sex: Female

DRUGS (26)
  1. ATORVASTATIN [Concomitant]
     Active Substance: ATORVASTATIN
     Route: 048
     Dates: start: 20140416, end: 20141110
  2. T4 [Concomitant]
     Active Substance: LEVOTHYROXINE
     Route: 048
     Dates: start: 20140711
  3. SYSTANE (HYPROMELLOSE 2910 (4000 MPA.S)) [Concomitant]
     Active Substance: HYPROMELLOSE 2910 (4000 MPA.S)
     Route: 047
     Dates: start: 201202
  4. LOTEPREDNOL [Concomitant]
     Active Substance: LOTEPREDNOL
     Route: 047
     Dates: start: 201202
  5. ATORVASTATIN [Concomitant]
     Active Substance: ATORVASTATIN
     Route: 048
     Dates: start: 20141128, end: 20150331
  6. PREGABALINE [Concomitant]
     Active Substance: PREGABALIN
     Route: 048
     Dates: start: 20140904, end: 20140911
  7. METHOTREXATE [Concomitant]
     Active Substance: METHOTREXATE
     Route: 048
     Dates: start: 20110720, end: 20121101
  8. METOCLOPRAMIDE. [Concomitant]
     Active Substance: METOCLOPRAMIDE
     Route: 048
     Dates: start: 20121029, end: 20121030
  9. PREGABALINE [Concomitant]
     Active Substance: PREGABALIN
     Route: 048
     Dates: start: 20140711
  10. PANTOPRAZOLE SODIUM. [Concomitant]
     Active Substance: PANTOPRAZOLE SODIUM
     Route: 048
     Dates: start: 20141125, end: 20150331
  11. TOCILIZUMAB [Suspect]
     Active Substance: TOCILIZUMAB
     Indication: RHEUMATOID ARTHRITIS
     Dosage: DATE OF THE LAST DOSE OF TCZ PRIOR TO AE ONSET: 20/MAR/2015
     Route: 042
  12. METHOTREXATE [Concomitant]
     Active Substance: METHOTREXATE
     Route: 048
     Dates: start: 20121102, end: 20140710
  13. METHOTREXATE [Concomitant]
     Active Substance: METHOTREXATE
     Route: 048
     Dates: start: 20140711
  14. PREDNISONE. [Concomitant]
     Active Substance: PREDNISONE
     Route: 048
     Dates: start: 20110720, end: 20121102
  15. XEDENOL FLEX [Concomitant]
     Dosage: DOSE: 1 TABLET
     Route: 048
     Dates: start: 20111211, end: 20120930
  16. XEDENOL FLEX [Concomitant]
     Dosage: DOSE: 1 TABLET
     Route: 048
     Dates: start: 20121001, end: 20141110
  17. N-ACETYLCYSTEINE [Concomitant]
     Active Substance: ACETYLCYSTEINE
     Route: 048
     Dates: start: 20120907, end: 20120914
  18. CITALOPRAM [Concomitant]
     Active Substance: CITALOPRAM HYDROBROMIDE
     Route: 048
     Dates: start: 20120310, end: 20150331
  19. LIPONORM PLUS [Concomitant]
     Dosage: DOSE: 1 TABLET
     Route: 048
     Dates: start: 20120420, end: 20130301
  20. ATORVASTATIN [Concomitant]
     Active Substance: ATORVASTATIN
     Route: 048
     Dates: start: 20130517, end: 20140415
  21. NORFLOXACIN [Concomitant]
     Active Substance: NORFLOXACIN
     Route: 065
     Dates: start: 20141209, end: 20141216
  22. FOLIC ACID. [Concomitant]
     Active Substance: FOLIC ACID
     Route: 048
     Dates: start: 20120907, end: 20130418
  23. FOLIC ACID. [Concomitant]
     Active Substance: FOLIC ACID
     Route: 048
     Dates: start: 20130419, end: 20131110
  24. PREGABALINE [Concomitant]
     Active Substance: PREGABALIN
     Route: 048
     Dates: start: 20140612
  25. PREGABALINE [Concomitant]
     Active Substance: PREGABALIN
     Route: 048
     Dates: start: 20140912
  26. FOLIC ACID. [Concomitant]
     Active Substance: FOLIC ACID
     Route: 048
     Dates: start: 20111123, end: 20120906

REACTIONS (1)
  - Lung abscess [Recovering/Resolving]

NARRATIVE: CASE EVENT DATE: 20150328
